FAERS Safety Report 4336703-7 (Version None)
Quarter: 2004Q2

REPORT INFORMATION
  Report Type: 
  Country: None (occurrence: None)
  Receive Date: 20040412
  Receipt Date: 20040312
  Transmission Date: 20050107
  Serious: Yes (Hospitalization)
  Sender: FDA-Public Use
  Company Number: BE-BRISTOL-MYERS SQUIBB COMPANY-12532628

PATIENT
  Age: 80 Year
  Sex: Male

DRUGS (4)
  1. ETOPOSIDE [Suspect]
     Indication: SMALL CELL LUNG CANCER STAGE UNSPECIFIED
     Dosage: EVENT REOCCURRED AT C2 D1 (16-FEB-2004)
     Route: 042
     Dates: start: 20040126, end: 20040127
  2. HYPERLIPEN [Concomitant]
     Dosage: 100 MG
     Route: 048
  3. ALDACTAZINE [Concomitant]
     Dosage: ALTIZIDE 15 MG + SPIRONOLACTON 25 MG
     Route: 048
  4. ZURCAL [Concomitant]
     Dosage: ^1 CO^
     Route: 048

REACTIONS (1)
  - EPILEPSY [None]
